FAERS Safety Report 24721212 (Version 2)
Quarter: 2025Q1

REPORT INFORMATION
  Report Type: Spontaneous
  Country: US (occurrence: US)
  Receive Date: 20241211
  Receipt Date: 20250129
  Transmission Date: 20250408
  Serious: No
  Sender: NOVARTIS
  Company Number: US-002147023-NVSC2024US232288

PATIENT
  Age: 71 Year
  Sex: Female
  Weight: 92.517 kg

DRUGS (1)
  1. COSENTYX [Suspect]
     Active Substance: SECUKINUMAB
     Indication: Psoriatic arthropathy
     Route: 058
     Dates: start: 20240501

REACTIONS (3)
  - Blister [Unknown]
  - Skin exfoliation [Unknown]
  - Nausea [Unknown]

NARRATIVE: CASE EVENT DATE: 20241203
